FAERS Safety Report 24178853 (Version 2)
Quarter: 2024Q4

REPORT INFORMATION
  Report Type: Report from Study
  Country: CA (occurrence: CA)
  Receive Date: 20240806
  Receipt Date: 20241001
  Transmission Date: 20250114
  Serious: Yes (Other)
  Sender: OTSUKA
  Company Number: CA-OTSUKA-2023_007089

PATIENT
  Sex: Female

DRUGS (3)
  1. ARIPIPRAZOLE [Suspect]
     Active Substance: ARIPIPRAZOLE
     Indication: Product used for unknown indication
     Dosage: 250 MG (EVERY 4 WEEKS)
     Route: 030
  2. ARIPIPRAZOLE [Suspect]
     Active Substance: ARIPIPRAZOLE
     Dosage: 200 MG, QM
     Route: 065
  3. ARIPIPRAZOLE [Suspect]
     Active Substance: ARIPIPRAZOLE
     Dosage: 200 MG EVERY 4 WEEKS
     Route: 030

REACTIONS (9)
  - Intentional self-injury [Recovered/Resolved]
  - Intentional self-injury [Not Recovered/Not Resolved]
  - Crying [Not Recovered/Not Resolved]
  - Platelet count increased [Not Recovered/Not Resolved]
  - Foot fracture [Unknown]
  - Psychiatric symptom [Recovered/Resolved]
  - Influenza [Not Recovered/Not Resolved]
  - Panic attack [Recovered/Resolved]
  - Underdose [Unknown]
